FAERS Safety Report 5875753-6 (Version None)
Quarter: 2008Q3

REPORT INFORMATION
  Report Type: 
  Country: None (occurrence: None)
  Receive Date: 20080905
  Receipt Date: 20080828
  Transmission Date: 20090109
  Serious: Yes (Hospitalization)
  Sender: FDA-Public Use
  Company Number: GXKR2008JP07513

PATIENT
  Age: 74 Year
  Sex: Male

DRUGS (3)
  1. AMOXICILLIN TRIHYDRATE [Suspect]
     Indication: HELICOBACTER PYLORI IDENTIFICATION TEST POSITIVE
     Dosage: 1.5 G,
  2. CLARITHROMYCIN [Suspect]
     Indication: HELICOBACTER INFECTION
     Dosage: 800 MG,
  3. LANSOPRAZOLE [Suspect]
     Indication: HELICOBACTER PYLORI IDENTIFICATION TEST POSITIVE
     Dosage: 60 MG,

REACTIONS (2)
  - ANAPLASTIC LARGE CELL LYMPHOMA T- AND NULL-CELL TYPES [None]
  - GASTRIC ULCER [None]
